FAERS Safety Report 4561040-5 (Version None)
Quarter: 2005Q1

REPORT INFORMATION
  Report Type: 
  Country: None (occurrence: None)
  Receive Date: 20050126
  Receipt Date: 20040903
  Transmission Date: 20050727
  Serious: No
  Sender: FDA-Public Use
  Company Number: US-BRISTOL-MYERS SQUIBB COMPANY-12693131

PATIENT
  Age: 59 Year
  Sex: Female
  Weight: 81 kg

DRUGS (6)
  1. GLUCOPHAGE [Suspect]
     Indication: DIABETES MELLITUS
     Dosage: TOOK 11 TABLETS OVER A PERIOD OF A ^FEW DAYS^
     Route: 048
  2. AMAREL [Concomitant]
  3. ACTOSE [Concomitant]
  4. TARKA [Concomitant]
  5. COREG [Concomitant]
  6. PRAVACHOL [Concomitant]

REACTIONS (2)
  - MEDICATION ERROR [None]
  - NAUSEA [None]
